FAERS Safety Report 15898419 (Version 1)
Quarter: 2019Q1

REPORT INFORMATION
  Report Type: Spontaneous
  Country: US (occurrence: US)
  Receive Date: 20190201
  Receipt Date: 20190201
  Transmission Date: 20190417
  Serious: No
  Sender: FDA-Public Use
  Company Number: US-KADMON PHARMACEUTICALS, LLC-KAD-201805-01318

PATIENT
  Sex: Female

DRUGS (2)
  1. INTERFERON [Suspect]
     Active Substance: INTERFERON
     Indication: HEPATITIS C
     Dates: start: 2007
  2. RIBAVIRIN. [Suspect]
     Active Substance: RIBAVIRIN
     Indication: HEPATITIS C
     Dosage: 6 TABLET
     Route: 048
     Dates: start: 2007

REACTIONS (8)
  - Vomiting [Unknown]
  - Nausea [Unknown]
  - Pruritus [Recovered/Resolved]
  - Dry skin [Recovered/Resolved]
  - Anger [Unknown]
  - Chromaturia [Recovered/Resolved]
  - Alopecia [Unknown]
  - Fatigue [Recovered/Resolved]
